FAERS Safety Report 11137904 (Version 2)
Quarter: 2015Q3

REPORT INFORMATION
  Report Type: Spontaneous
  Country: AU (occurrence: AU)
  Receive Date: 20150526
  Receipt Date: 20150826
  Transmission Date: 20151125
  Serious: Yes (Life-Threatening, Hospitalization, Other)
  Sender: FDA-Public Use
  Company Number: AU-009507513-1505AUS003157

PATIENT
  Age: 51 Year
  Sex: Female

DRUGS (2)
  1. INDOMETHACIN. [Concomitant]
     Active Substance: INDOMETHACIN
     Indication: RENAL COLIC
     Dosage: 100 MG, UNK
     Route: 054
  2. RIZATRIPTAN WAFER 10 MG [Suspect]
     Active Substance: RIZATRIPTAN
     Indication: HEADACHE
     Dosage: 3 DF, Q24H

REACTIONS (3)
  - Subarachnoid haemorrhage [Recovered/Resolved]
  - Off label use [Recovered/Resolved]
  - Reversible cerebral vasoconstriction syndrome [Recovered/Resolved]

NARRATIVE: CASE EVENT DATE: 2012
